FAERS Safety Report 13848622 (Version 1)
Quarter: 2017Q3

REPORT INFORMATION
  Report Type: Report from Study
  Country: None (occurrence: US)
  Receive Date: 20170809
  Receipt Date: 20170809
  Transmission Date: 20171127
  Serious: Yes (Other)
  Sender: FDA-Public Use
  Company Number: US-ABBVIE-17K-163-1850486-00

PATIENT
  Age: 49 Year
  Sex: Female
  Weight: 32.69 kg

DRUGS (5)
  1. HUMIRA [Suspect]
     Active Substance: ADALIMUMAB
     Indication: RHEUMATOID ARTHRITIS
     Route: 058
     Dates: end: 201612
  2. REMICADE [Concomitant]
     Active Substance: INFLIXIMAB
     Indication: PRODUCT USED FOR UNKNOWN INDICATION
     Dates: end: 201707
  3. HUMIRA [Suspect]
     Active Substance: ADALIMUMAB
     Route: 058
     Dates: start: 201707
  4. CLINDAMYCIN. [Concomitant]
     Active Substance: CLINDAMYCIN
     Indication: PRODUCT USED FOR UNKNOWN INDICATION
  5. REMICADE [Concomitant]
     Active Substance: INFLIXIMAB
     Dates: start: 2017

REACTIONS (19)
  - Tendon rupture [Recovered/Resolved]
  - Multiple fractures [Recovered/Resolved]
  - Fall [Recovered/Resolved]
  - Sinusitis [Not Recovered/Not Resolved]
  - Gastrointestinal hypomotility [Not Recovered/Not Resolved]
  - Rotator cuff syndrome [Recovered/Resolved]
  - Compartment syndrome [Recovered/Resolved]
  - Rotator cuff syndrome [Recovered/Resolved]
  - Pneumonia staphylococcal [Recovered/Resolved]
  - Weight decreased [Unknown]
  - Fall [Recovered/Resolved]
  - Intestinal obstruction [Recovered/Resolved]
  - Fibula fracture [Recovered/Resolved]
  - Laryngitis [Not Recovered/Not Resolved]
  - Tibia fracture [Recovered/Resolved]
  - Bone erosion [Not Recovered/Not Resolved]
  - Gastrointestinal infection [Recovered/Resolved]
  - Sjogren^s syndrome [Not Recovered/Not Resolved]
  - Lower limb fracture [Recovered/Resolved]

NARRATIVE: CASE EVENT DATE: 2008
